FAERS Safety Report 7301261-1 (Version None)
Quarter: 2011Q1

REPORT INFORMATION
  Report Type: 
  Country: None (occurrence: None)
  Receive Date: 20110112
  Receipt Date: 20090323
  Transmission Date: 20110831
  Serious: Yes (Hospitalization, Other)
  Sender: FDA-Public Use
  Company Number: THYM-1000974

PATIENT
  Age: 56 Year
  Sex: Female
  Weight: 94.4 kg

DRUGS (8)
  1. BENADRYL [Concomitant]
  2. ACETAMINOPHEN [Concomitant]
  3. THYMOGLOBULIN [Suspect]
     Indication: IMMUNOSUPPRESSION
     Dosage: 150 MG, QOD, INTRAVENOUS
     Route: 042
     Dates: start: 20090314, end: 20090318
  4. METHYLPREDNISOLONE [Concomitant]
  5. VALCYTE [Concomitant]
  6. SEPTRA [Concomitant]
  7. ALBUMIN (HUMAN) [Concomitant]
  8. TACROLIMUS [Concomitant]

REACTIONS (5)
  - CYTOKINE RELEASE SYNDROME [None]
  - RESPIRATORY DISTRESS [None]
  - HYPOXIA [None]
  - PULMONARY OEDEMA [None]
  - DYSPNOEA [None]
